FAERS Safety Report 7904377-1 (Version None)
Quarter: 2011Q4

REPORT INFORMATION
  Report Type: 
  Country: None (occurrence: None)
  Receive Date: 20111109
  Receipt Date: 20111031
  Transmission Date: 20120403
  Serious: Yes (Other)
  Sender: FDA-Public Use
  Company Number: US-BAYER-201035730NA

PATIENT
  Age: 26 Year
  Sex: Female
  Weight: 83.9 kg

DRUGS (1)
  1. YAZ [Suspect]
     Indication: PRODUCT USED FOR UNKNOWN INDICATION
     Dosage: UNK
     Dates: start: 20060501, end: 20071001

REACTIONS (7)
  - BILIARY COLIC [None]
  - CHOLECYSTITIS CHRONIC [None]
  - DISCOMFORT [None]
  - PAIN [None]
  - FLATULENCE [None]
  - DIARRHOEA [None]
  - WEIGHT DECREASED [None]
